FAERS Safety Report 9886772 (Version 3)
Quarter: 2014Q2

REPORT INFORMATION
  Report Type: Spontaneous
  Country: CA (occurrence: CA)
  Receive Date: 20140210
  Receipt Date: 20140424
  Transmission Date: 20141212
  Serious: Yes (Other)
  Sender: FDA-Public Use
  Company Number: CA-BAXTER-2014BAX005550

PATIENT
  Age: 37 Year
  Sex: Female
  Weight: 86 kg

DRUGS (7)
  1. GAMMAGARD LIQUID -IMMUNE GLOBULIN INTRAVENOUS (HUMAN), [IGIV] 10% [Suspect]
     Indication: THROMBOCYTOPENIA
     Route: 042
     Dates: start: 20140113, end: 20140114
  2. GAMMAGARD LIQUID -IMMUNE GLOBULIN INTRAVENOUS (HUMAN), [IGIV] 10% [Suspect]
     Indication: OFF LABEL USE
     Route: 042
     Dates: start: 20140113, end: 20140113
  3. CEFAZOLIN [Concomitant]
     Indication: POSTOPERATIVE WOUND INFECTION
     Route: 042
  4. DILAUDID [Concomitant]
     Indication: PAIN
     Dosage: IF NEEDED
     Route: 048
  5. TYLENOL [Concomitant]
     Indication: PYREXIA
     Dosage: IF NEEDED
     Route: 048
  6. TYLENOL [Concomitant]
     Indication: PAIN
  7. TYLENOL [Concomitant]
     Indication: HEADACHE

REACTIONS (4)
  - Haemolysis [Recovered/Resolved]
  - Antibody test positive [Unknown]
  - Blood disorder [Unknown]
  - Discomfort [Recovered/Resolved]
